FAERS Safety Report 14280815 (Version 1)
Quarter: 2017Q4

REPORT INFORMATION
  Report Type: Spontaneous
  Country: CA (occurrence: CA)
  Receive Date: 20171213
  Receipt Date: 20171213
  Transmission Date: 20180321
  Serious: Yes (Disabling)
  Sender: FDA-Public Use
  Company Number: None

PATIENT
  Age: 45 Year
  Sex: Female
  Weight: 54 kg

DRUGS (6)
  1. DERMAMED [Concomitant]
     Active Substance: ALUMINUM HYDROXIDE
  2. ELOMET [Suspect]
     Active Substance: MOMETASONE FUROATE
     Dates: start: 20070601, end: 20140705
  3. VITAMIN D3 [Concomitant]
     Active Substance: CHOLECALCIFEROL
  4. BETAMETHASONE. [Suspect]
     Active Substance: BETAMETHASONE
     Indication: ECZEMA
     Dates: start: 20070601, end: 20140705
  5. ATARAX [Concomitant]
     Active Substance: HYDROXYZINE HYDROCHLORIDE
  6. K2 [Concomitant]
     Active Substance: JWH-018

REACTIONS (11)
  - Rash [None]
  - Temperature regulation disorder [None]
  - Drug hypersensitivity [None]
  - Cortisol decreased [None]
  - Drug effect decreased [None]
  - Erythema [None]
  - Oedema [None]
  - Hypothalamic pituitary adrenal axis suppression [None]
  - Dermatitis atopic [None]
  - Iatrogenic injury [None]
  - Dermatitis [None]

NARRATIVE: CASE EVENT DATE: 20140705
